FAERS Safety Report 4403632-X (Version None)
Quarter: 2004Q3

REPORT INFORMATION
  Report Type: 
  Country: None (occurrence: None)
  Receive Date: 20040719
  Receipt Date: 20040710
  Transmission Date: 20050211
  Serious: Yes (Other)
  Sender: FDA-Public Use
  Company Number: 2004038586

PATIENT
  Age: 62 Year
  Sex: Male

DRUGS (1)
  1. TIKOSYN [Suspect]
     Indication: ILL-DEFINED DISORDER
     Dosage: UNK (SEE IMAGE)
     Route: 065

REACTIONS (2)
  - CELLULITIS [None]
  - CHOLECYSTITIS [None]
